FAERS Safety Report 5942106-1 (Version None)
Quarter: 2008Q4

REPORT INFORMATION
  Report Type: 
  Country: None (occurrence: None)
  Receive Date: 20081105
  Receipt Date: 20081103
  Transmission Date: 20090506
  Serious: Yes (Life-Threatening, Hospitalization)
  Sender: FDA-Public Use
  Company Number: ES-WYE-G02472908

PATIENT
  Age: 80 Year
  Sex: Male

DRUGS (9)
  1. TYGACIL [Suspect]
     Indication: DIVERTICULITIS
     Dosage: 100 MG AT THE BEGINING AND THEN 50 MG
     Dates: start: 20081024, end: 20081028
  2. PANTOPRAZOLE SODIUM [Concomitant]
     Indication: PROPHYLAXIS AGAINST GASTROINTESTINAL ULCER
     Route: 042
     Dates: start: 20081024, end: 20081025
  3. INSULIN [Concomitant]
     Indication: DIABETES MELLITUS
     Dosage: MOBILE
     Route: 058
     Dates: start: 20081024, end: 20081103
  4. METOCLOPRAMIDE [Concomitant]
     Indication: ANTIEMETIC SUPPORTIVE CARE
     Route: 042
     Dates: start: 20081024, end: 20081026
  5. ENOXAPARIN SODIUM [Concomitant]
     Indication: THROMBOSIS PROPHYLAXIS
     Route: 058
     Dates: start: 20081024, end: 20081103
  6. ACETAMINOPHEN [Concomitant]
     Indication: ANALGESIA
     Route: 042
     Dates: start: 20081024, end: 20081103
  7. ACETAMINOPHEN [Concomitant]
     Indication: BODY TEMPERATURE INCREASED
  8. DIPYRONE TAB [Suspect]
     Indication: ANALGESIA
     Route: 042
     Dates: start: 20081024, end: 20081025
  9. DIPYRONE TAB [Suspect]
     Indication: BODY TEMPERATURE INCREASED

REACTIONS (4)
  - CONDITION AGGRAVATED [None]
  - LEUKOPENIA [None]
  - RENAL FAILURE ACUTE [None]
  - THROMBOCYTOPENIA [None]
